FAERS Safety Report 13994663 (Version 1)
Quarter: 2017Q3

REPORT INFORMATION
  Report Type: Spontaneous
  Country: US (occurrence: None)
  Receive Date: 20170920
  Receipt Date: 20170920
  Transmission Date: 20171128
  Serious: Yes (Hospitalization)
  Sender: FDA-Public Use
  Company Number: None

PATIENT
  Age: 60 Year
  Sex: Female

DRUGS (7)
  1. LEVOTHYROXIN [Concomitant]
     Active Substance: LEVOTHYROXINE
  2. CEPHALEXIN. [Concomitant]
     Active Substance: CEPHALEXIN
  3. IBRANCE [Suspect]
     Active Substance: PALBOCICLIB
     Indication: BREAST CANCER FEMALE
     Dosage: QD FOR 21 DAYS
     Route: 048
     Dates: start: 20170823
  4. OXYCODONE [Concomitant]
     Active Substance: OXYCODONE
  5. FASLODEX [Concomitant]
     Active Substance: FULVESTRANT
  6. ESCITALOPRAM [Concomitant]
     Active Substance: ESCITALOPRAM OXALATE
  7. MORPHINE [Concomitant]
     Active Substance: MORPHINE

REACTIONS (1)
  - Sepsis [None]

NARRATIVE: CASE EVENT DATE: 201709
